FAERS Safety Report 4290041-X (Version None)
Quarter: 2004Q1

REPORT INFORMATION
  Report Type: 
  Country: None (occurrence: None)
  Receive Date: 20040209
  Receipt Date: 20031029
  Transmission Date: 20041129
  Serious: Yes (Hospitalization, Other)
  Sender: FDA-Public Use
  Company Number: USA030948513

PATIENT
  Age: 80 Year
  Sex: Female
  Weight: 66 kg

DRUGS (1)
  1. EVISTA [Suspect]
     Dosage: 60 MG/DAY
     Dates: start: 20030808

REACTIONS (1)
  - EMBOLISM [None]
